FAERS Safety Report 10155902 (Version 1)
Quarter: 2014Q2

REPORT INFORMATION
  Report Type: Spontaneous
  Country: US (occurrence: US)
  Receive Date: 20140506
  Receipt Date: 20140506
  Transmission Date: 20141212
  Serious: Yes (Other)
  Sender: FDA-Public Use
  Company Number: US-TEVA-479848USA

PATIENT
  Age: 27 Year
  Sex: Female
  Weight: 95.79 kg

DRUGS (3)
  1. PARAGARD 380A [Suspect]
     Indication: CONTRACEPTION
     Route: 015
     Dates: start: 20140320, end: 20140501
  2. METFORMIN [Concomitant]
     Indication: POLYCYSTIC OVARIES
     Dosage: 2000 MILLIGRAM DAILY; BID
     Route: 048
  3. TRANDATE [Concomitant]
     Indication: HYPERTENSION
     Dosage: 100 MILLIGRAM DAILY; QD
     Route: 048

REACTIONS (1)
  - Device dislocation [Recovered/Resolved]
